FAERS Safety Report 6384917-7 (Version None)
Quarter: 2009Q4

REPORT INFORMATION
  Report Type: 
  Country: None (occurrence: None)
  Receive Date: 20091002
  Receipt Date: 20090922
  Transmission Date: 20100525
  Serious: Yes (Disabling, Other)
  Sender: FDA-Public Use
  Company Number: US-CELGENEUS-163-21880-09081670

PATIENT
  Sex: Female

DRUGS (6)
  1. REVLIMID [Suspect]
     Indication: MULTIPLE MYELOMA
     Route: 048
     Dates: start: 20070815, end: 20090819
  2. FRAGMIN [Concomitant]
     Dosage: 5,000 UNITS
     Route: 058
     Dates: start: 20080101
  3. THYROID TAB [Concomitant]
     Indication: HYPOTHYROIDISM
     Route: 065
  4. NIFEDIPINE [Concomitant]
     Indication: HYPERTENSION
     Route: 065
  5. FLUOCINOLONE ACETONIDE [Concomitant]
     Indication: DRUG USE FOR UNKNOWN INDICATION
     Route: 065
  6. ZOMETA [Concomitant]
     Indication: DRUG USE FOR UNKNOWN INDICATION
     Route: 065
     Dates: start: 20080701

REACTIONS (4)
  - BLOOD COUNT ABNORMAL [None]
  - BREAST CANCER FEMALE [None]
  - DISEASE PROGRESSION [None]
  - NEUTROPENIA [None]
